FAERS Safety Report 4273362-6 (Version None)
Quarter: 2004Q1

REPORT INFORMATION
  Report Type: 
  Country: None (occurrence: None)
  Receive Date: 20040115
  Receipt Date: 20040115
  Transmission Date: 20041129
  Serious: No
  Sender: FDA-Public Use
  Company Number: None

PATIENT
  Age: 15 Year
  Sex: Male
  Weight: 55 kg

DRUGS (4)
  1. GAMUNEX [Suspect]
     Indication: COELIAC DISEASE
     Dosage: 30 GM IV Q4 WKS
     Route: 042
     Dates: start: 20040109
  2. GAMUNEX [Suspect]
     Indication: HUMORAL IMMUNE DEFECT
     Dosage: 30 GM IV Q4 WKS
     Route: 042
     Dates: start: 20040109
  3. SALINE [Concomitant]
  4. BACTIOSTATIC [Concomitant]

REACTIONS (3)
  - DYSARTHRIA [None]
  - HEADACHE [None]
  - SKIN DISCOLOURATION [None]
